FAERS Safety Report 8218902-7 (Version None)
Quarter: 2012Q1

REPORT INFORMATION
  Report Type: 
  Country: None (occurrence: None)
  Receive Date: 20120319
  Receipt Date: 20120315
  Transmission Date: 20120608
  Serious: Yes (Hospitalization, Other)
  Sender: FDA-Public Use
  Company Number: PHHY2012AR023575

PATIENT
  Sex: Female

DRUGS (2)
  1. DIOVAN [Suspect]
     Dosage: 0.5 DF (320MG) DAILY
  2. RADIATION TREATMENT [Concomitant]

REACTIONS (3)
  - PNEUMONIA [None]
  - BRAIN NEOPLASM [None]
  - LUNG DISORDER [None]
